FAERS Safety Report 10341868 (Version 2)
Quarter: 2014Q3

REPORT INFORMATION
  Report Type: Report from Study
  Country: CA (occurrence: CA)
  Receive Date: 20140725
  Receipt Date: 20140725
  Transmission Date: 20150326
  Serious: Yes (Death)
  Sender: FDA-Public Use
  Company Number: PHHY2014CA071477

PATIENT
  Age: 77 Year
  Sex: Male

DRUGS (1)
  1. SANDOSTATIN [Suspect]
     Active Substance: OCTREOTIDE ACETATE
     Indication: PANCREATIC NEUROENDOCRINE TUMOUR
     Dosage: 200 UG, BID X 2 WKS, RPT X 1
     Route: 058
     Dates: start: 20140513

REACTIONS (3)
  - Death [Fatal]
  - Hypoacusis [Unknown]
  - Hearing impaired [Unknown]

NARRATIVE: CASE EVENT DATE: 20140625
